FAERS Safety Report 8049403-7 (Version None)
Quarter: 2012Q1

REPORT INFORMATION
  Report Type: 
  Country: None (occurrence: None)
  Receive Date: 20120117
  Receipt Date: 20120109
  Transmission Date: 20120608
  Serious: Yes (Other)
  Sender: FDA-Public Use
  Company Number: BR-PFIZER INC-2011305160

PATIENT
  Age: 84 Year
  Sex: Female

DRUGS (4)
  1. XALATAN [Suspect]
     Indication: INTRAOCULAR PRESSURE INCREASED
     Dosage: ONE DROP IN EACH EYE (3 UG), 1X/DAY
     Route: 047
  2. ATORVASTATIN CALCIUM [Concomitant]
     Indication: BLOOD CHOLESTEROL
     Dosage: 20 MG, 1X/DAY
     Route: 048
     Dates: start: 20100101
  3. XALATAN [Suspect]
     Dosage: ONE DROP (1.5 UG), 1X/DAY IN RIGHT EYE
     Route: 047
  4. ATORVASTATIN CALCIUM [Concomitant]
     Dosage: 1/2 TAB OF 20 MG

REACTIONS (3)
  - INTRAOCULAR PRESSURE INCREASED [None]
  - GLAUCOMA [None]
  - VISUAL ACUITY REDUCED [None]
